FAERS Safety Report 6246124-8 (Version None)
Quarter: 2009Q2

REPORT INFORMATION
  Report Type: 
  Country: None (occurrence: None)
  Receive Date: 20090626
  Receipt Date: 20090323
  Transmission Date: 20091009
  Serious: No
  Sender: FDA-Public Use
  Company Number: A0774823A

PATIENT
  Age: 59 Year
  Sex: Female

DRUGS (2)
  1. IMITREX [Suspect]
     Indication: MIGRAINE
     Route: 048
     Dates: start: 19950101, end: 19950101
  2. THYROID MEDICATION [Concomitant]
     Route: 048

REACTIONS (1)
  - DRUG INEFFECTIVE [None]
